FAERS Safety Report 8934703 (Version 8)
Quarter: 2013Q4

REPORT INFORMATION
  Report Type: Spontaneous
  Country: US (occurrence: US)
  Receive Date: 20121129
  Receipt Date: 20131218
  Transmission Date: 20140711
  Serious: Yes (Hospitalization, Other)
  Sender: FDA-Public Use
  Company Number: US-ROCHE-718962

PATIENT
  Age: 14 Year
  Sex: Male
  Weight: 77.1 kg

DRUGS (7)
  1. ACCUTANE [Suspect]
     Indication: ACNE
     Route: 048
     Dates: start: 19990929, end: 19991227
  2. ACCUTANE [Suspect]
     Route: 048
     Dates: start: 20000209, end: 20000307
  3. ACCUTANE [Suspect]
     Dosage: DOSE INCREASED
     Route: 048
     Dates: start: 20000308, end: 20000418
  4. ACCUTANE [Suspect]
     Dosage: DOSE DECREASED
     Route: 048
     Dates: start: 20000419, end: 20000516
  5. ACCUTANE [Suspect]
     Route: 048
     Dates: start: 20000517, end: 200008
  6. PREDNISONE [Concomitant]
     Route: 048
     Dates: start: 20000119
  7. PREDNISONE [Concomitant]
     Route: 065
     Dates: start: 19991201, end: 20000614

REACTIONS (27)
  - Colitis [Unknown]
  - Colitis ulcerative [Unknown]
  - Clostridium difficile infection [Unknown]
  - Gastrointestinal injury [Unknown]
  - Suicidal ideation [Unknown]
  - Inflammatory bowel disease [Unknown]
  - Large intestine polyp [Unknown]
  - Depression [Unknown]
  - Colitis ulcerative [Unknown]
  - Haemorrhoids [Unknown]
  - Oral herpes [Unknown]
  - Acne [Not Recovered/Not Resolved]
  - Pyrexia [Unknown]
  - Night sweats [Unknown]
  - Weight decreased [Unknown]
  - High density lipoprotein decreased [Unknown]
  - Myalgia [Unknown]
  - Arthralgia [Unknown]
  - Impetigo [Unknown]
  - White blood cell count increased [Unknown]
  - Pain of skin [Unknown]
  - Dry mouth [Unknown]
  - Lip dry [Unknown]
  - Mood swings [Unknown]
  - Cellulitis [Unknown]
  - Impetigo [Unknown]
  - Road traffic accident [Unknown]
